FAERS Safety Report 24879384 (Version 2)
Quarter: 2025Q1

REPORT INFORMATION
  Report Type: Spontaneous
  Country: US (occurrence: US)
  Receive Date: 20250123
  Receipt Date: 20250123
  Transmission Date: 20250408
  Serious: Yes (Other)
  Sender: GILEAD
  Company Number: US-GILEAD-2025-0700603

PATIENT
  Sex: Male

DRUGS (1)
  1. ODEFSEY [Suspect]
     Active Substance: EMTRICITABINE\RILPIVIRINE HYDROCHLORIDE\TENOFOVIR ALAFENAMIDE FUMARATE
     Indication: HIV infection
     Route: 065

REACTIONS (5)
  - Anxiety [Not Recovered/Not Resolved]
  - Nightmare [Not Recovered/Not Resolved]
  - Pollakiuria [Not Recovered/Not Resolved]
  - Urine odour abnormal [Not Recovered/Not Resolved]
  - Diarrhoea [Not Recovered/Not Resolved]
